FAERS Safety Report 5999184-3 (Version None)
Quarter: 2008Q4

REPORT INFORMATION
  Report Type: 
  Country: None (occurrence: None)
  Receive Date: 20081211
  Receipt Date: 20081201
  Transmission Date: 20090506
  Serious: Yes (Other)
  Sender: FDA-Public Use
  Company Number: 14425318

PATIENT
  Sex: Female
  Weight: 113.3 kg

DRUGS (9)
  1. EMSAM [Suspect]
     Indication: DEPRESSION
     Dosage: 6 MILLIGRAM, 24 HOUR TD
     Route: 062
     Dates: start: 20080801
  2. NEXIUM [Concomitant]
  3. ACTIGALL [Concomitant]
  4. ABILIFY [Concomitant]
  5. LYRICA [Concomitant]
  6. AMBIEN [Concomitant]
  7. KLONOPIN [Concomitant]
  8. ROZEREM [Concomitant]
  9. LORAZEPAM [Concomitant]

REACTIONS (4)
  - HYPERTENSION [None]
  - INSOMNIA [None]
  - NASAL CONGESTION [None]
  - TYRAMINE REACTION [None]
